FAERS Safety Report 6273959-8 (Version None)
Quarter: 2009Q3

REPORT INFORMATION
  Report Type: 
  Country: None (occurrence: None)
  Receive Date: 20090720
  Receipt Date: 20090707
  Transmission Date: 20100115
  Serious: Yes (Disabling, Other)
  Sender: FDA-Public Use
  Company Number: GB-ELI_LILLY_AND_COMPANY-GB200905003466

PATIENT
  Sex: Male
  Weight: 70 kg

DRUGS (2)
  1. ZYPREXA [Suspect]
     Indication: SCHIZOPHRENIA
     Dosage: 10 MG, UNK
     Route: 048
     Dates: start: 20090310, end: 20090515
  2. RISPERIDONE [Concomitant]
     Indication: ACUTE PSYCHOSIS
     Dosage: 2 MG, 2/D
     Route: 048
     Dates: start: 20090101, end: 20090309

REACTIONS (1)
  - TINNITUS [None]
